FAERS Safety Report 6803461-3 (Version None)
Quarter: 2010Q2

REPORT INFORMATION
  Report Type: 
  Country: None (occurrence: None)
  Receive Date: 20100628
  Receipt Date: 20100623
  Transmission Date: 20101027
  Serious: Yes (Life-Threatening, Hospitalization)
  Sender: FDA-Public Use
  Company Number: FR-ROCHE-711262

PATIENT
  Age: 21 Year
  Sex: Male
  Weight: 50 kg

DRUGS (8)
  1. MIRCERA [Suspect]
     Dosage: FREQUENCY: MONTHLY
     Route: 065
     Dates: start: 20090601
  2. MIRCERA [Suspect]
     Dosage: DOSE INCREASED
     Route: 065
     Dates: start: 20090902
  3. MIRCERA [Suspect]
     Route: 065
     Dates: start: 20091201
  4. MIRCERA [Suspect]
     Route: 065
     Dates: start: 20100301
  5. MIRCERA [Suspect]
     Route: 065
     Dates: start: 20100501
  6. MABTHERA [Suspect]
     Indication: PROPHYLAXIS
     Route: 065
     Dates: start: 20090728, end: 20090730
  7. BACTRIM [Suspect]
     Indication: PROPHYLAXIS
     Route: 065
     Dates: start: 20090728
  8. VENOFER [Concomitant]

REACTIONS (4)
  - ANAEMIA [None]
  - BLOOD SODIUM INCREASED [None]
  - HYPERTENSIVE ENCEPHALOPATHY [None]
  - LUNG INFECTION [None]
